FAERS Safety Report 18456838 (Version 2)
Quarter: 2020Q4

REPORT INFORMATION
  Report Type: Report from Study
  Country: PA (occurrence: PA)
  Receive Date: 20201103
  Receipt Date: 20201120
  Transmission Date: 20210114
  Serious: Yes (Other)
  Sender: FDA-Public Use
  Company Number: NVSC2020PA290322

PATIENT
  Sex: Male
  Weight: 195 kg

DRUGS (2)
  1. EXFORGE [Suspect]
     Active Substance: AMLODIPINE BESYLATE\VALSARTAN
     Indication: BLOOD PRESSURE INCREASED
     Dosage: 5/160 MG (START DATE: 6 YEARS AGO, STOP DATE: 4 YEARS AGO)
     Route: 065
  2. EXFORGE [Suspect]
     Active Substance: AMLODIPINE BESYLATE\VALSARTAN
     Dosage: 5/ 80 MG (START DATE: 4 YEARS AGO)
     Route: 065

REACTIONS (3)
  - Deafness [Unknown]
  - Otitis media [Unknown]
  - Peripheral nerve lesion [Unknown]
